FAERS Safety Report 7884254-5 (Version None)
Quarter: 2011Q4

REPORT INFORMATION
  Report Type: 
  Country: None (occurrence: None)
  Receive Date: 20111102
  Receipt Date: 20111031
  Transmission Date: 20120403
  Serious: Yes (Other)
  Sender: FDA-Public Use
  Company Number: US-PFIZER INC-2011266438

PATIENT
  Sex: Female

DRUGS (2)
  1. LIPITOR [Suspect]
     Dosage: 20MG ONCE A DAY
  2. LIPITOR [Suspect]
     Dosage: 40 MG, ONCE A DAY

REACTIONS (1)
  - NEUROPATHY PERIPHERAL [None]
